FAERS Safety Report 8388741-5 (Version None)
Quarter: 2012Q2

REPORT INFORMATION
  Report Type: 
  Country: None (occurrence: None)
  Receive Date: 20120528
  Receipt Date: 20120514
  Transmission Date: 20120825
  Serious: Yes (Hospitalization)
  Sender: FDA-Public Use
  Company Number: LK-BRISTOL-MYERS SQUIBB COMPANY-16481202

PATIENT
  Age: 18 Year
  Sex: Female

DRUGS (2)
  1. METFORMIN HCL [Suspect]
     Dosage: DOSING: 17.5 GRAMS, 35TABS
  2. KEROSENE [Interacting]
     Dosage: APPROXIMATELY 200ML OF KEROSENE OIL

REACTIONS (7)
  - RENAL FAILURE ACUTE [None]
  - HYPOGLYCAEMIA [None]
  - DRUG INTERACTION [None]
  - OVERDOSE [None]
  - LACTIC ACIDOSIS [None]
  - HYPOGLYCAEMIC SEIZURE [None]
  - SUICIDE ATTEMPT [None]
